FAERS Safety Report 6941965-3 (Version None)
Quarter: 2010Q3

REPORT INFORMATION
  Report Type: 
  Country: None (occurrence: None)
  Receive Date: 20100826
  Receipt Date: 20100820
  Transmission Date: 20110219
  Serious: Yes (Hospitalization)
  Sender: FDA-Public Use
  Company Number: US-GENZYME-CERZ-1001477

PATIENT

DRUGS (2)
  1. CEREZYME [Suspect]
     Indication: GAUCHER'S DISEASE
     Dosage: 400 U, 1X/W
     Route: 042
     Dates: start: 20090101
  2. ZAVESCA [Concomitant]
     Indication: GAUCHER'S DISEASE

REACTIONS (2)
  - NERVOUS SYSTEM DISORDER [None]
  - RESPIRATORY DISORDER [None]
